FAERS Safety Report 5034033-1 (Version None)
Quarter: 2006Q2

REPORT INFORMATION
  Report Type: 
  Country: None (occurrence: None)
  Receive Date: 20060626
  Receipt Date: 20060619
  Transmission Date: 20061013
  Serious: Yes (Life-Threatening, Hospitalization)
  Sender: FDA-Public Use
  Company Number: FR-JNJFOC-20060501756

PATIENT
  Age: 72 Year
  Sex: Female

DRUGS (6)
  1. OFLOCET [Suspect]
     Indication: BRONCHOPNEUMOPATHY
     Route: 048
     Dates: start: 20060327, end: 20060329
  2. COUMADIN [Interacting]
     Indication: DRUG USE FOR UNKNOWN INDICATION
     Route: 048
     Dates: start: 19980615, end: 20060329
  3. AUGMENTIN '125' [Interacting]
     Indication: BRONCHOPNEUMOPATHY
     Route: 048
     Dates: start: 20060321, end: 20060328
  4. DEPAKENE [Interacting]
     Indication: DRUG USE FOR UNKNOWN INDICATION
     Route: 048
  5. LEVOTHYROX [Concomitant]
     Route: 048
  6. STEROGYL [Concomitant]
     Route: 048

REACTIONS (2)
  - DRUG INTERACTION [None]
  - INTERNATIONAL NORMALISED RATIO INCREASED [None]
